FAERS Safety Report 4831121-7 (Version None)
Quarter: 2005Q4

REPORT INFORMATION
  Report Type: 
  Country: None (occurrence: None)
  Receive Date: 20051114
  Receipt Date: 20051031
  Transmission Date: 20060501
  Serious: Yes (Hospitalization, Other)
  Sender: FDA-Public Use
  Company Number: 2005BH002782

PATIENT
  Age: 54 Year
  Sex: Male
  Weight: 55 kg

DRUGS (13)
  1. DIANEAL [Suspect]
     Indication: RENAL FAILURE CHRONIC
     Dosage: SEE IMAGE
     Route: 033
     Dates: start: 20031007, end: 20050719
  2. DIANEAL [Suspect]
     Indication: RENAL FAILURE CHRONIC
     Dosage: SEE IMAGE
     Route: 033
     Dates: start: 20050802, end: 20050830
  3. DIANEAL [Suspect]
     Indication: RENAL FAILURE CHRONIC
     Dosage: SEE IMAGE
     Route: 033
     Dates: start: 20050907
  4. EXTRANEAL [Suspect]
     Indication: RENAL FAILURE CHRONIC
     Dosage: 1500 ML; EVERY DAY;IP
     Route: 033
     Dates: start: 20031007, end: 20050714
  5. EXTRANEAL [Suspect]
     Indication: RENAL FAILURE CHRONIC
     Dosage: 1500 ML; EVERY DAY;IP
     Route: 033
     Dates: start: 20050802, end: 20050830
  6. EXTRANEAL [Suspect]
     Indication: RENAL FAILURE CHRONIC
     Dosage: 1500 ML; EVERY DAY;IP
     Route: 033
     Dates: start: 20050907
  7. AMLODIPINE BESYLATE [Concomitant]
  8. CARDENALIN [Concomitant]
  9. ROCALTROL [Concomitant]
  10. MICARDIS [Concomitant]
  11. CALCIUM CARBONATE [Concomitant]
  12. ESPO [Concomitant]
  13. RENAGEL [Concomitant]

REACTIONS (3)
  - HAEMODIALYSIS [None]
  - INGUINAL HERNIA [None]
  - PYREXIA [None]
